FAERS Safety Report 5950389-7 (Version None)
Quarter: 2008Q4

REPORT INFORMATION
  Report Type: 
  Country: None (occurrence: None)
  Receive Date: 20081112
  Receipt Date: 20081105
  Transmission Date: 20090506
  Serious: Yes (Hospitalization)
  Sender: FDA-Public Use
  Company Number: PHHY2008CI27500

PATIENT
  Sex: Male

DRUGS (2)
  1. TEGRETOL [Suspect]
     Dosage: 400 MG, TID
     Route: 048
     Dates: start: 20080908
  2. HALOPERIDOL DECANOATE [Concomitant]
     Indication: DELUSION
     Dosage: 150 MG, UNK
     Route: 030
     Dates: start: 20080825, end: 20080925

REACTIONS (4)
  - CONJUNCTIVAL DISORDER [None]
  - DERMATITIS BULLOUS [None]
  - DYSPHAGIA [None]
  - ORAL DISORDER [None]
